FAERS Safety Report 25731988 (Version 1)
Quarter: 2025Q3

REPORT INFORMATION
  Report Type: Spontaneous
  Country: EU (occurrence: EU)
  Receive Date: 20250827
  Receipt Date: 20250827
  Transmission Date: 20251021
  Serious: Yes (Other)
  Sender: NOVARTIS
  Company Number: EU-002147023-NVSC2025DE132937

PATIENT
  Sex: Female

DRUGS (1)
  1. EVEROLIMUS [Suspect]
     Active Substance: EVEROLIMUS
     Indication: Tuberculosis
     Dosage: 10 MG, QD (0-0-1)
     Route: 065
     Dates: start: 1994

REACTIONS (4)
  - Mastoiditis [Unknown]
  - Mastoid abscess [Unknown]
  - Meningitis [Unknown]
  - Off label use [Unknown]

NARRATIVE: CASE EVENT DATE: 20250818
